FAERS Safety Report 8916572 (Version 29)
Quarter: 2021Q4

REPORT INFORMATION
  Report Type: Other
  Country: CA (occurrence: CA)
  Receive Date: 20121120
  Receipt Date: 20211130
  Transmission Date: 20220303
  Serious: Yes (Life-Threatening, Hospitalization, Other)
  Sender: FDA-Public Use
  Company Number: CA-GENENTECH-312381

PATIENT
  Age: 53 Year
  Sex: Female
  Weight: 88 kg

DRUGS (27)
  1. XOLAIR [Suspect]
     Active Substance: OMALIZUMAB
     Indication: Asthma
     Dosage: VIAL
     Route: 058
     Dates: start: 20100624
  2. XOLAIR [Suspect]
     Active Substance: OMALIZUMAB
     Indication: Pneumonia
     Route: 058
     Dates: start: 20131210
  3. XOLAIR [Suspect]
     Active Substance: OMALIZUMAB
     Route: 058
     Dates: start: 20140408
  4. XOLAIR [Suspect]
     Active Substance: OMALIZUMAB
     Route: 058
     Dates: start: 20140805
  5. XOLAIR [Suspect]
     Active Substance: OMALIZUMAB
     Route: 058
     Dates: start: 20141223, end: 20150205
  6. XOLAIR [Suspect]
     Active Substance: OMALIZUMAB
     Dosage: LEFT ARM
     Route: 058
     Dates: start: 20141223, end: 20150205
  7. XOLAIR [Suspect]
     Active Substance: OMALIZUMAB
     Dosage: RIGHT ARM
     Route: 058
  8. XOLAIR [Suspect]
     Active Substance: OMALIZUMAB
     Route: 058
     Dates: start: 20160324
  9. XOLAIR [Suspect]
     Active Substance: OMALIZUMAB
     Route: 058
     Dates: start: 20161110
  10. XOLAIR [Suspect]
     Active Substance: OMALIZUMAB
     Route: 058
     Dates: start: 20161114
  11. XOLAIR [Suspect]
     Active Substance: OMALIZUMAB
     Route: 058
     Dates: start: 20170223
  12. XOLAIR [Suspect]
     Active Substance: OMALIZUMAB
     Route: 058
     Dates: start: 20170427
  13. XOLAIR [Suspect]
     Active Substance: OMALIZUMAB
     Route: 058
     Dates: start: 20170622
  14. XOLAIR [Suspect]
     Active Substance: OMALIZUMAB
     Route: 058
     Dates: start: 20170720
  15. PREDNISONE [Suspect]
     Active Substance: PREDNISONE
     Indication: Asthma
     Route: 065
     Dates: start: 20150205
  16. PREDNISONE [Suspect]
     Active Substance: PREDNISONE
     Indication: Pneumonia
  17. PREDNISONE [Suspect]
     Active Substance: PREDNISONE
     Indication: Lower respiratory tract infection
  18. ALBUTEROL [Concomitant]
     Active Substance: ALBUTEROL
     Indication: Product used for unknown indication
     Route: 065
  19. ALBUTEROL [Concomitant]
     Active Substance: ALBUTEROL
     Dosage: UNK
     Route: 065
  20. PULMICORT TURBUHALER [Concomitant]
     Active Substance: BUDESONIDE
     Indication: Product used for unknown indication
     Dosage: UNK
     Route: 065
  21. PULMICORT TURBUHALER [Concomitant]
     Active Substance: BUDESONIDE
     Route: 065
  22. ADVAIR HFA [Concomitant]
     Active Substance: FLUTICASONE PROPIONATE\SALMETEROL XINAFOATE
     Indication: Product used for unknown indication
     Route: 065
  23. ADVAIR HFA [Concomitant]
     Active Substance: FLUTICASONE PROPIONATE\SALMETEROL XINAFOATE
     Dosage: UNK
     Route: 065
  24. BREO ELLIPTA [Concomitant]
     Active Substance: FLUTICASONE FUROATE\VILANTEROL TRIFENATATE
  25. ATROVENT [Concomitant]
     Active Substance: IPRATROPIUM BROMIDE
  26. PREDNISONE [Concomitant]
     Active Substance: PREDNISONE
  27. VENTOLIN [Concomitant]
     Active Substance: ALBUTEROL SULFATE

REACTIONS (40)
  - Haematoma [Unknown]
  - Pneumonia [Recovering/Resolving]
  - Pneumonia [Not Recovered/Not Resolved]
  - Pyrexia [Not Recovered/Not Resolved]
  - Vomiting [Unknown]
  - Asthma [Recovering/Resolving]
  - Weight decreased [Unknown]
  - Chest discomfort [Unknown]
  - Neoplasm malignant [Unknown]
  - Gastric infection [Unknown]
  - Syncope [Unknown]
  - Pulmonary hypertension [Unknown]
  - Productive cough [Unknown]
  - Device occlusion [Unknown]
  - Cardiomegaly [Unknown]
  - Arrhythmia [Unknown]
  - Lower respiratory tract infection [Unknown]
  - Electrolyte imbalance [Unknown]
  - Upper respiratory tract infection [Recovered/Resolved]
  - Pulmonary congestion [Unknown]
  - Viral infection [Unknown]
  - Respiratory rate increased [Unknown]
  - Weight increased [Unknown]
  - Diarrhoea [Recovering/Resolving]
  - Heart rate irregular [Unknown]
  - Infection [Unknown]
  - Erythema [Unknown]
  - Swelling [Unknown]
  - Pain [Unknown]
  - Blood pressure increased [Unknown]
  - Sinus congestion [Recovered/Resolved]
  - Pain in jaw [Unknown]
  - Malaise [Unknown]
  - Fluid retention [Unknown]
  - Oxygen saturation decreased [Unknown]
  - Nausea [Unknown]
  - Dizziness [Unknown]
  - Inappropriate schedule of product administration [Unknown]
  - Expired product administered [Unknown]
  - Dyspnoea [Not Recovered/Not Resolved]

NARRATIVE: CASE EVENT DATE: 20110401
